FAERS Safety Report 20091786 (Version 1)
Quarter: 2021Q4

REPORT INFORMATION
  Report Type: Spontaneous
  Country: BR (occurrence: BR)
  Receive Date: 20211119
  Receipt Date: 20211119
  Transmission Date: 20220303
  Serious: Yes (Hospitalization, Other)
  Sender: FDA-Public Use
  Company Number: BR-LUPIN PHARMACEUTICALS INC.-2021-22641

PATIENT
  Age: 61 Year
  Sex: Female

DRUGS (7)
  1. POTASSIUM CHLORIDE [Suspect]
     Active Substance: POTASSIUM CHLORIDE
     Indication: Cutaneous sporotrichosis
     Dosage: UNK (1 G/ML 3 DROPS A DAY AND INCREASED), POTASSIUM-IODIDE, DROPS
     Route: 048
  2. POTASSIUM CHLORIDE [Suspect]
     Active Substance: POTASSIUM CHLORIDE
     Dosage: UNK (1 G/ML; 25 DROPS A DAY)
     Route: 048
  3. ITRACONAZOLE [Suspect]
     Active Substance: ITRACONAZOLE
     Indication: Cutaneous sporotrichosis
     Dosage: 100 MILLIGRAM, QD
     Route: 048
  4. ITRACONAZOLE [Suspect]
     Active Substance: ITRACONAZOLE
     Dosage: 200 MILLIGRAM, QD
     Route: 048
  5. AMPHOTERICIN B [Suspect]
     Active Substance: AMPHOTERICIN B
     Indication: Cutaneous sporotrichosis
     Dosage: 50 MILLIGRAM, QD (DILUTED IN 500ML OF SODIUM AND GLUCOSE)
     Route: 065
  6. SODIUM CHLORIDE [Concomitant]
     Active Substance: SODIUM CHLORIDE
     Indication: Vehicle solution use
     Dosage: 500 MILLILITER (AMPHOTERICIN-B DEOXYCHOLATE DILUTED IN 500ML OF SODIUM CHLORIDE AND GLUCOSE)
     Route: 065
  7. DEXTROSE [Concomitant]
     Active Substance: DEXTROSE
     Indication: Vehicle solution use
     Dosage: 500 MILLILITER (AMPHOTERICIN-B DEOXYCHOLATE DILUTED IN 500ML OF SODIUM CHLORIDE AND GLUCOSE)
     Route: 065

REACTIONS (9)
  - Gastrointestinal disorder [Unknown]
  - Blood potassium increased [Unknown]
  - Blood creatine increased [Unknown]
  - Drug ineffective for unapproved indication [Unknown]
  - Off label use [Unknown]
  - Dysgeusia [Unknown]
  - Decreased appetite [Unknown]
  - Nausea [Recovering/Resolving]
  - Vomiting [Recovering/Resolving]
